FAERS Safety Report 11962646 (Version 2)
Quarter: 2016Q1

REPORT INFORMATION
  Report Type: Spontaneous
  Country: US (occurrence: US)
  Receive Date: 20160126
  Receipt Date: 20160304
  Transmission Date: 20160526
  Serious: Yes (Other)
  Sender: FDA-Public Use
  Company Number: US-ROCHE-1690280

PATIENT
  Age: 39 Year
  Sex: Female
  Weight: 103.51 kg

DRUGS (1)
  1. RITUXAN [Suspect]
     Active Substance: RITUXIMAB
     Indication: B-CELL LYMPHOMA
     Dosage: MAINTENANCE DOSE EVERY 8 WEEKS.
     Route: 042
     Dates: start: 201506

REACTIONS (3)
  - Vaginal cyst [Recovering/Resolving]
  - Dysuria [Not Recovered/Not Resolved]
  - Dermal cyst [Unknown]

NARRATIVE: CASE EVENT DATE: 201510
